FAERS Safety Report 9358230 (Version 1)
Quarter: 2013Q2

REPORT INFORMATION
  Report Type: Spontaneous
  Country: US (occurrence: US)
  Receive Date: 20130620
  Receipt Date: 20130620
  Transmission Date: 20140414
  Serious: No
  Sender: FDA-Public Use
  Company Number: US-GALDERMA-US-GDP-12414485

PATIENT
  Sex: Female

DRUGS (1)
  1. DIFFERIN (ADAPALENE) CREAM, 0.1% [Suspect]
     Indication: SCAR
     Dosage: UNKNOWN
     Route: 061

REACTIONS (3)
  - Off label use [Unknown]
  - Skin burning sensation [Unknown]
  - Acne [Unknown]
